FAERS Safety Report 20053239 (Version 2)
Quarter: 2021Q4

REPORT INFORMATION
  Report Type: Spontaneous
  Country: US (occurrence: US)
  Receive Date: 20211110
  Receipt Date: 20211209
  Transmission Date: 20220304
  Serious: Yes (Hospitalization, Other)
  Sender: FDA-Public Use
  Company Number: US-ABBVIE-21K-163-4152245-00

PATIENT
  Age: 77 Year
  Sex: Female
  Weight: 46.762 kg

DRUGS (9)
  1. HUMIRA [Suspect]
     Active Substance: ADALIMUMAB
     Indication: Uveitis
     Route: 058
     Dates: start: 202102, end: 20211022
  2. MODERNA COVID-19 VACCINE [Concomitant]
     Active Substance: ELASOMERAN
     Indication: COVID-19 immunisation
     Route: 030
     Dates: start: 20210129, end: 20210129
  3. MODERNA COVID-19 VACCINE [Concomitant]
     Active Substance: ELASOMERAN
     Route: 030
     Dates: start: 20210226, end: 20210226
  4. AMLODIPINE [Concomitant]
     Active Substance: AMLODIPINE BESYLATE
     Indication: Blood pressure measurement
  5. DORZOLOMIDE HYDROCHLORIDE [Concomitant]
     Indication: Uveitis
  6. PROLENSA [Concomitant]
     Active Substance: BROMFENAC SODIUM
     Indication: Uveitis
  7. ALPHAGAN P [Concomitant]
     Active Substance: BRIMONIDINE TARTRATE
     Indication: Uveitis
  8. LATANOPROST [Concomitant]
     Active Substance: LATANOPROST
     Indication: Uveitis
  9. LOTEMAX [Concomitant]
     Active Substance: LOTEPREDNOL ETABONATE
     Indication: Uveitis

REACTIONS (4)
  - Pneumonia [Unknown]
  - Varicella [Recovering/Resolving]
  - Pulmonary mass [Unknown]
  - Gastrointestinal wall thickening [Unknown]

NARRATIVE: CASE EVENT DATE: 20211027
